FAERS Safety Report 20246487 (Version 1)
Quarter: 2021Q4

REPORT INFORMATION
  Report Type: Spontaneous
  Country: US (occurrence: None)
  Receive Date: 20211228
  Receipt Date: 20211228
  Transmission Date: 20220303
  Serious: Yes (Disabling)
  Sender: FDA-Public Use
  Company Number: None

PATIENT
  Age: 41 Year
  Sex: Female
  Weight: 63 kg

DRUGS (1)
  1. VIVITROL [Suspect]
     Active Substance: NALTREXONE
     Indication: Drug dependence
     Dosage: OTHER FREQUENCY : 30 DAYS;?
     Route: 058
     Dates: start: 20211216

REACTIONS (2)
  - Suicidal ideation [None]
  - Back pain [None]

NARRATIVE: CASE EVENT DATE: 20211228
